FAERS Safety Report 19446708 (Version 1)
Quarter: 2021Q2

REPORT INFORMATION
  Report Type: Spontaneous
  Country: US (occurrence: US)
  Receive Date: 20210620
  Receipt Date: 20210620
  Transmission Date: 20210717
  Serious: Yes (Life-Threatening)
  Sender: FDA-Public Use
  Company Number: None

PATIENT
  Age: 74 Year
  Sex: Male
  Weight: 72 kg

DRUGS (15)
  1. FENOFIBRATE 48MG [Suspect]
     Active Substance: FENOFIBRATE
     Indication: CORONARY ARTERY DISEASE
     Dosage: QUANTITY:1 TABLET(S);?
     Route: 048
     Dates: start: 20210115, end: 20210615
  2. FENOFIBRATE 48MG [Suspect]
     Active Substance: FENOFIBRATE
     Indication: LOW DENSITY LIPOPROTEIN INCREASED
     Dosage: QUANTITY:1 TABLET(S);?
     Route: 048
     Dates: start: 20210115, end: 20210615
  3. XARELTO [Concomitant]
     Active Substance: RIVAROXABAN
  4. BENADRYL [Concomitant]
     Active Substance: DIPHENHYDRAMINE HYDROCHLORIDE
  5. VITAMIN B6 [Concomitant]
     Active Substance: PYRIDOXINE HYDROCHLORIDE
  6. FOLATE [Concomitant]
     Active Substance: FOLATE SODIUM
  7. FENOFIBRATE 48MG [Suspect]
     Active Substance: FENOFIBRATE
     Indication: LIPIDS INCREASED
     Dosage: QUANTITY:1 TABLET(S);?
     Route: 048
     Dates: start: 20210115, end: 20210615
  8. ZETIA [Concomitant]
     Active Substance: EZETIMIBE
  9. FENOFIBRATE 48MG [Suspect]
     Active Substance: FENOFIBRATE
     Indication: HYPERCHOLESTEROLAEMIA
     Dosage: QUANTITY:1 TABLET(S);?
     Route: 048
     Dates: start: 20210115, end: 20210615
  10. CLARITIN [Concomitant]
     Active Substance: LORATADINE
  11. NIASPAN [Concomitant]
     Active Substance: NIACIN
  12. QUESTRAN [Concomitant]
     Active Substance: CHOLESTYRAMINE
  13. VITAMIN D3 [Concomitant]
     Active Substance: CHOLECALCIFEROL
  14. PEPCID [Concomitant]
     Active Substance: FAMOTIDINE
  15. ZINC. [Concomitant]
     Active Substance: ZINC

REACTIONS (1)
  - Thrombocytopenia [None]

NARRATIVE: CASE EVENT DATE: 20210616
